FAERS Safety Report 5353406-0 (Version None)
Quarter: 2007Q2

REPORT INFORMATION
  Report Type: 
  Country: None (occurrence: None)
  Receive Date: 20070612
  Receipt Date: 20070531
  Transmission Date: 20071010
  Serious: Yes (Death, Life-Threatening, Hospitalization)
  Sender: FDA-Public Use
  Company Number: GB-JNJFOC-20070600161

PATIENT
  Sex: Male
  Weight: 102 kg

DRUGS (6)
  1. INFLIXIMAB [Suspect]
     Indication: RHEUMATOID ARTHRITIS
     Route: 042
  2. METHOTREXATE [Concomitant]
  3. LEFLUNOMIDE [Concomitant]
  4. PREDNISOLONE [Concomitant]
  5. BECLOMETHASONE DIPROPIONATE [Concomitant]
  6. SALBUTAMOL [Concomitant]

REACTIONS (1)
  - AORTIC ANEURYSM RUPTURE [None]
